FAERS Safety Report 7789037-2 (Version None)
Quarter: 2011Q3

REPORT INFORMATION
  Report Type: 
  Country: None (occurrence: None)
  Receive Date: 20110930
  Receipt Date: 20110923
  Transmission Date: 20111222
  Serious: Yes (Other)
  Sender: FDA-Public Use
  Company Number: US-JNJFOC-20110911304

PATIENT
  Sex: Female
  Weight: 79.83 kg

DRUGS (11)
  1. ELMIRON [Suspect]
     Indication: CYSTITIS INTERSTITIAL
     Route: 048
     Dates: start: 20110201, end: 20110601
  2. ELMIRON [Suspect]
     Route: 048
     Dates: start: 20110601, end: 20110923
  3. PLAVIX [Concomitant]
     Indication: THROMBOSIS
     Route: 048
     Dates: start: 20020101
  4. LEVOTHYROXINE [Concomitant]
     Indication: THYROID DISORDER
     Route: 048
     Dates: start: 20020101
  5. ATENOLOL [Concomitant]
     Indication: HEART RATE DECREASED
     Route: 048
     Dates: start: 20090101
  6. LIPITOR [Concomitant]
     Route: 048
     Dates: start: 20020101
  7. PREMARIN [Concomitant]
     Indication: HOT FLUSH
     Route: 048
     Dates: start: 19800101
  8. VIRAMUNE [Concomitant]
     Indication: HIV INFECTION
     Route: 048
     Dates: start: 20030101
  9. TRUVADA [Concomitant]
     Indication: HIV INFECTION
     Route: 048
     Dates: start: 20030101
  10. ASPIRIN [Concomitant]
     Indication: THROMBOSIS
     Route: 048
     Dates: start: 20090101
  11. PRILOSEC [Concomitant]
     Indication: DYSPEPSIA
     Route: 048

REACTIONS (8)
  - NAUSEA [None]
  - PRODUCT QUALITY ISSUE [None]
  - MALAISE [None]
  - DYSURIA [None]
  - ABDOMINAL PAIN UPPER [None]
  - AGEUSIA [None]
  - WEIGHT DECREASED [None]
  - BLADDER DISORDER [None]
